FAERS Safety Report 10166832 (Version 1)
Quarter: 2014Q2

REPORT INFORMATION
  Report Type: Spontaneous
  Country: FR (occurrence: FR)
  Receive Date: 20140512
  Receipt Date: 20140512
  Transmission Date: 20141212
  Serious: Yes (Death)
  Sender: FDA-Public Use
  Company Number: FR-ASTELLAS-2014EU005006

PATIENT
  Sex: Male

DRUGS (2)
  1. MYCAMINE [Suspect]
     Indication: SYSTEMIC CANDIDA
     Dosage: 100 MG, UNKNOWN DAILY
     Route: 065
  2. TRIFLUCAN [Concomitant]
     Indication: PRODUCT USED FOR UNKNOWN INDICATION
     Dosage: 400 MG, DAILY
     Route: 065

REACTIONS (2)
  - Death [Fatal]
  - Intentional product misuse [Unknown]
